FAERS Safety Report 5704525-8 (Version None)
Quarter: 2008Q2

REPORT INFORMATION
  Report Type: 
  Country: None (occurrence: None)
  Receive Date: 20080411
  Receipt Date: 20080411
  Transmission Date: 20081010
  Serious: Yes (Other)
  Sender: FDA-Public Use
  Company Number: None

PATIENT
  Age: 83 Year
  Sex: Male
  Weight: 84 kg

DRUGS (4)
  1. TRANEXAMIC ACID  1 G/10 ML  PFIZER [Suspect]
     Indication: CARDIAC OPERATION
     Dosage: 1 GRAM ONCE IV BOLUS
     Route: 040
     Dates: start: 20080407, end: 20080407
  2. TRANEXAMIC ACID  1 G/10 ML  PFIZER [Suspect]
     Indication: POST PROCEDURAL HAEMORRHAGE
     Dosage: 1 GRAM ONCE IV BOLUS
     Route: 040
     Dates: start: 20080407, end: 20080407
  3. TRANEXAMIC ACID  1 G/10 ML  PFIZER [Suspect]
     Indication: PROPHYLAXIS
     Dosage: 1 GRAM ONCE IV BOLUS
     Route: 040
     Dates: start: 20080407, end: 20080407
  4. TRANEXAMIC ACID  1 G/10 ML  PFIZER [Suspect]
     Dosage: 400 MG/HOUR CONTINUOUS IV DRIP
     Route: 041

REACTIONS (1)
  - GRAND MAL CONVULSION [None]
